FAERS Safety Report 9076990 (Version 1)
Quarter: 2013Q1

REPORT INFORMATION
  Report Type: Report from Study
  Country: US (occurrence: US)
  Receive Date: 20130129
  Receipt Date: 20130129
  Transmission Date: 20140127
  Serious: No
  Sender: FDA-Public Use
  Company Number: US-ABBOTT-12P-163-0918929-00

PATIENT
  Sex: Female

DRUGS (11)
  1. HUMIRA 40 MG/0.8 ML PEN [Suspect]
     Indication: CROHN^S DISEASE
     Dosage: DAY ONE
     Dates: start: 20120316, end: 20120316
  2. HUMIRA 40 MG/0.8 ML PEN [Suspect]
     Dosage: DAY 14
  3. HUMIRA 40 MG/0.8 ML PEN [Suspect]
     Dosage: DAY 29
  4. HUMIRA 40 MG/0.8 ML PEN [Suspect]
     Dosage: EVERY TWO WEEKS
  5. PREDNISONE [Concomitant]
     Indication: PRODUCT USED FOR UNKNOWN INDICATION
     Dosage: TAPERING
     Route: 048
  6. MERCAPTOPURINE [Concomitant]
     Indication: PRODUCT USED FOR UNKNOWN INDICATION
     Route: 048
  7. EQL POTASSIUM GLUC [Concomitant]
     Indication: PRODUCT USED FOR UNKNOWN INDICATION
     Route: 048
  8. COLACE [Concomitant]
     Indication: PRODUCT USED FOR UNKNOWN INDICATION
     Route: 048
  9. CVS IRON [Concomitant]
     Indication: PRODUCT USED FOR UNKNOWN INDICATION
  10. PRENATAL VITAMINS [Concomitant]
     Indication: VITAMIN SUPPLEMENTATION
  11. 6-MP [Concomitant]
     Indication: CROHN^S DISEASE

REACTIONS (3)
  - Acne [Unknown]
  - Dry skin [Unknown]
  - Burning sensation [Unknown]
